FAERS Safety Report 21400842 (Version 1)
Quarter: 2022Q4

REPORT INFORMATION
  Report Type: Other
  Country: US (occurrence: None)
  Receive Date: 20221003
  Receipt Date: 20221003
  Transmission Date: 20230113
  Serious: Yes (Hospitalization)
  Sender: FDA-Public Use
  Company Number: US-ROCHE-3190919

PATIENT
  Sex: Female

DRUGS (4)
  1. XELODA [Suspect]
     Active Substance: CAPECITABINE
     Indication: Breast cancer metastatic
     Dosage: TAKE 3 TABLET(S) BY MOUTH (1500 MG) TWICE A DAY FOR 14 DAYS ON AND 7 DAYS OFF
     Route: 048
  2. XELODA [Suspect]
     Active Substance: CAPECITABINE
     Indication: Osteoporosis
  3. XELODA [Suspect]
     Active Substance: CAPECITABINE
     Indication: Breast cancer female
  4. XELODA [Suspect]
     Active Substance: CAPECITABINE
     Indication: Senile osteoporosis

REACTIONS (1)
  - Road traffic accident [Unknown]
